FAERS Safety Report 7897183-8 (Version None)
Quarter: 2011Q4

REPORT INFORMATION
  Report Type: 
  Country: None (occurrence: None)
  Receive Date: 20111107
  Receipt Date: 20111024
  Transmission Date: 20120403
  Serious: Yes (Other)
  Sender: FDA-Public Use
  Company Number: CA-ELI_LILLY_AND_COMPANY-CA201110006140

PATIENT
  Sex: Male

DRUGS (20)
  1. ZYPREXA [Suspect]
     Dosage: 15 MG, UNK
  2. ZYPREXA [Suspect]
     Dosage: 5 MG, EACH EVENING
  3. INDERAL [Concomitant]
  4. CLONAZEPAM [Concomitant]
  5. CELEXA [Concomitant]
  6. CLOZAPINE [Concomitant]
  7. DILAUDID [Concomitant]
  8. LUVOX [Concomitant]
  9. ZYPREXA [Suspect]
     Dosage: 7.5 MG, EACH EVENING
  10. ZYPREXA [Suspect]
     Indication: SCHIZOPHRENIA
     Dosage: 20 MG, UNK
     Dates: end: 20050922
  11. ZYPREXA [Suspect]
     Dosage: 15 MG, QD
  12. AMITRIPTYLINE HCL [Concomitant]
  13. GABAPENTIN [Concomitant]
  14. TRAZODONE HYDROCHLORIDE [Concomitant]
  15. ATIVAN [Concomitant]
  16. PAXIL [Concomitant]
  17. SEROQUEL [Concomitant]
  18. ZYPREXA [Suspect]
     Indication: SCHIZOPHRENIA
     Dosage: 10 MG, EACH EVENING
     Dates: start: 20000821, end: 20050922
  19. CHLORPROMAZINE HCL [Concomitant]
  20. KEMADRIN [Concomitant]

REACTIONS (7)
  - ASPARTATE AMINOTRANSFERASE INCREASED [None]
  - NEUROPATHY PERIPHERAL [None]
  - WEIGHT INCREASED [None]
  - HYPERGLYCAEMIA [None]
  - BLOOD TRIGLYCERIDES INCREASED [None]
  - HEPATITIS C [None]
  - ALANINE AMINOTRANSFERASE INCREASED [None]
